FAERS Safety Report 12276545 (Version 1)
Quarter: 2016Q2

REPORT INFORMATION
  Report Type: Spontaneous
  Country: VN (occurrence: VN)
  Receive Date: 20160418
  Receipt Date: 20160418
  Transmission Date: 20160815
  Serious: Yes (Hospitalization)
  Sender: FDA-Public Use
  Company Number: VN-009507513-1604VNM010592

PATIENT
  Sex: Female

DRUGS (1)
  1. FOSAMAX PLUS D [Suspect]
     Active Substance: ALENDRONATE SODIUM\CHOLECALCIFEROL
     Dosage: STRENGTH 2800 (UNSPECIFIED UNIT), ONE TABLET (1 DF), ONCE A WEEK (QW)
     Route: 048
     Dates: start: 20150901

REACTIONS (2)
  - Hypertension [Recovering/Resolving]
  - Decreased appetite [Recovering/Resolving]
